FAERS Safety Report 5698792-7 (Version None)
Quarter: 2008Q2

REPORT INFORMATION
  Report Type: 
  Country: None (occurrence: None)
  Receive Date: 20080404
  Receipt Date: 20080319
  Transmission Date: 20081010
  Serious: Yes (Other)
  Sender: FDA-Public Use
  Company Number: 2008EU000614

PATIENT
  Age: 42 Year
  Sex: Male

DRUGS (2)
  1. PROGRAF [Suspect]
     Indication: RENAL TRANSPLANT
     Dosage: 12 MG, UID/QD, ORAL
     Route: 048
     Dates: start: 20060101
  2. CELLCEPT [Suspect]
     Indication: RENAL TRANSPLANT
     Dosage: 1 G, UID/QD, ORAL
     Route: 048
     Dates: start: 20060101

REACTIONS (1)
  - SPERMATOZOA ABNORMAL [None]
